FAERS Safety Report 5929893-3 (Version None)
Quarter: 2008Q4

REPORT INFORMATION
  Report Type: 
  Country: None (occurrence: None)
  Receive Date: 20081021
  Receipt Date: 20081006
  Transmission Date: 20090506
  Serious: Yes (Life-Threatening)
  Sender: FDA-Public Use
  Company Number: 2008BM000197

PATIENT
  Age: 16 Year
  Sex: Female
  Weight: 59.4 kg

DRUGS (2)
  1. KUVAN [Suspect]
     Indication: PHENYLKETONURIA
     Dosage: 10 MG/KG;QD;PO
     Route: 048
     Dates: start: 20081001, end: 20081004
  2. MINOCYCLINE HCL [Concomitant]

REACTIONS (6)
  - EYELID OEDEMA [None]
  - HYPERSENSITIVITY [None]
  - OESOPHAGEAL DISORDER [None]
  - OROPHARYNGEAL PAIN [None]
  - PALLOR [None]
  - PANIC REACTION [None]
